FAERS Safety Report 21263299 (Version 1)
Quarter: 2022Q3

REPORT INFORMATION
  Report Type: Other
  Country: None (occurrence: DE)
  Receive Date: 20220829
  Receipt Date: 20220829
  Transmission Date: 20221026
  Serious: Yes (Death, Hospitalization, Other)
  Sender: FDA-Public Use
  Company Number: DE-Appco Pharma LLC-2132314

PATIENT
  Age: 71 Year
  Sex: Male

DRUGS (2)
  1. METRONIDAZOLE [Suspect]
     Active Substance: METRONIDAZOLE
     Indication: Bacteraemia
     Route: 065
  2. CEFOTAXIME [Suspect]
     Active Substance: CEFOTAXIME SODIUM
     Route: 065

REACTIONS (2)
  - Drug ineffective [Fatal]
  - Sepsis [Fatal]
